FAERS Safety Report 6169191-9 (Version None)
Quarter: 2009Q2

REPORT INFORMATION
  Report Type: 
  Country: None (occurrence: None)
  Receive Date: 20090424
  Receipt Date: 20090219
  Transmission Date: 20091009
  Serious: No
  Sender: FDA-Public Use
  Company Number: ALL1-2009-00449

PATIENT
  Age: 9 Year
  Sex: Male
  Weight: 38.5 kg

DRUGS (1)
  1. VYVANSE [Suspect]
     Indication: ATTENTION DEFICIT/HYPERACTIVITY DISORDER
     Dosage: 1X/DAY QD, ORAL
     Route: 048
     Dates: start: 20071001, end: 20080201

REACTIONS (8)
  - AGITATION [None]
  - DECREASED APPETITE [None]
  - DRUG INEFFECTIVE [None]
  - FLAT AFFECT [None]
  - INSOMNIA [None]
  - NEGATIVISM [None]
  - NERVOUSNESS [None]
  - WEIGHT DECREASED [None]
